FAERS Safety Report 5885472-8 (Version None)
Quarter: 2008Q3

REPORT INFORMATION
  Report Type: 
  Country: None (occurrence: None)
  Receive Date: 20080916
  Receipt Date: 20080908
  Transmission Date: 20090109
  Serious: Yes (Hospitalization)
  Sender: FDA-Public Use
  Company Number: DE-TEVA-177097ISR

PATIENT
  Age: 63 Year
  Sex: Male

DRUGS (3)
  1. CYCLOSPORINE [Suspect]
  2. MYCOPHENOLATE MOFETIL [Suspect]
  3. PREDNISOLONE [Suspect]

REACTIONS (3)
  - HAEMANGIOMA OF SPLEEN [None]
  - NIGHT SWEATS [None]
  - SINUSITIS [None]
